FAERS Safety Report 13334436 (Version 1)
Quarter: 2017Q1

REPORT INFORMATION
  Report Type: Spontaneous
  Country: US (occurrence: US)
  Receive Date: 20170314
  Receipt Date: 20170314
  Transmission Date: 20170428
  Serious: No
  Sender: FDA-Public Use
  Company Number: US-JNJFOC-20170205422

PATIENT
  Age: 86 Year
  Sex: Female
  Weight: 54 kg

DRUGS (13)
  1. QUETIAPINE. [Concomitant]
     Active Substance: QUETIAPINE
  2. ATORVASTATIN [Concomitant]
     Active Substance: ATORVASTATIN
  3. DONEPEZIL. [Concomitant]
     Active Substance: DONEPEZIL
  4. GABAPENTIN. [Concomitant]
     Active Substance: GABAPENTIN
  5. WARFARIN [Concomitant]
     Active Substance: WARFARIN
  6. CALCITRIOL. [Concomitant]
     Active Substance: CALCITRIOL
  7. IRON [Concomitant]
     Active Substance: IRON
  8. VITAMIN B12 [Concomitant]
     Active Substance: CYANOCOBALAMIN
  9. VITAMIN D3 [Concomitant]
     Active Substance: CHOLECALCIFEROL
  10. IMBRUVICA [Suspect]
     Active Substance: IBRUTINIB
     Indication: WALDENSTROM^S MACROGLOBULINAEMIA
     Route: 065
     Dates: start: 20170104
  11. CHLORHEXIDINE [Concomitant]
     Active Substance: CHLORHEXIDINE
  12. METOPROLOL. [Concomitant]
     Active Substance: METOPROLOL
  13. HYDROCODONE [Concomitant]
     Active Substance: HYDROCODONE

REACTIONS (4)
  - Incorrect dose administered [Not Recovered/Not Resolved]
  - Rash [Not Recovered/Not Resolved]
  - Off label use [Not Recovered/Not Resolved]
  - Skin ulcer [Not Recovered/Not Resolved]

NARRATIVE: CASE EVENT DATE: 201701
